FAERS Safety Report 23484236 (Version 3)
Quarter: 2024Q1

REPORT INFORMATION
  Report Type: Spontaneous
  Country: JP (occurrence: None)
  Receive Date: 20240206
  Receipt Date: 20240228
  Transmission Date: 20240410
  Serious: Yes (Life-Threatening, Disabling)
  Sender: FDA-Public Use
  Company Number: JP-ROCHE-3502901

PATIENT
  Age: 4 Year
  Sex: Male
  Weight: 17 kg

DRUGS (11)
  1. RITUXAN [Suspect]
     Active Substance: RITUXIMAB
     Indication: Nephrotic syndrome
     Route: 041
     Dates: start: 20230111, end: 20230111
  2. RITUXAN [Suspect]
     Active Substance: RITUXIMAB
     Route: 041
     Dates: start: 20230907, end: 20230907
  3. RITUXAN [Suspect]
     Active Substance: RITUXIMAB
     Route: 041
     Dates: start: 20240124, end: 20240124
  4. CELLCEPT [Suspect]
     Active Substance: MYCOPHENOLATE MOFETIL
     Indication: Nephrotic syndrome
     Route: 048
  5. NEORAL [Suspect]
     Active Substance: CYCLOSPORINE
     Indication: Nephrotic syndrome
     Route: 048
  6. PREDNISOLONE [Suspect]
     Active Substance: PREDNISOLONE
     Indication: Nephrotic syndrome
     Route: 048
  7. ACETAMINOPHEN [Concomitant]
     Active Substance: ACETAMINOPHEN
     Dates: start: 20240124
  8. OLOPATADINE HYDROCHLORIDE [Concomitant]
     Active Substance: OLOPATADINE HYDROCHLORIDE
     Dates: start: 20240124
  9. PREDNISOLONE SODIUM SUCCINATE [Concomitant]
     Active Substance: PREDNISOLONE SODIUM SUCCINATE
     Dates: start: 20240124
  10. PREDNISOLONE ACETATE [Concomitant]
     Active Substance: PREDNISOLONE ACETATE
     Route: 042
     Dates: start: 20240124, end: 20240124
  11. ALLELOCK [Concomitant]
     Active Substance: OLOPATADINE HYDROCHLORIDE
     Route: 048
     Dates: start: 20240124, end: 20240124

REACTIONS (5)
  - Varicella [Recovered/Resolved]
  - Disseminated intravascular coagulation [Recovered/Resolved]
  - Anaphylactic shock [Recovered/Resolved]
  - Oropharyngeal discomfort [Unknown]
  - Off label use [Unknown]

NARRATIVE: CASE EVENT DATE: 20230111
